FAERS Safety Report 8880158 (Version 1)
Quarter: 2012Q4

REPORT INFORMATION
  Report Type: 
  Country: US (occurrence: US)
  Receive Date: 20121101
  Receipt Date: 20121101
  Transmission Date: 20130627
  Serious: Yes (Hospitalization, Other)
  Sender: FDA-Public Use
  Company Number: US-NOVOPROD-362886

PATIENT
  Age: 60 Year
  Sex: Male

DRUGS (2)
  1. VICTOZA [Suspect]
     Indication: TYPE 2 DIABETES MELLITUS
     Dosage: 0.6mg qd
     Route: 058
     Dates: start: 201210, end: 201210
  2. VICTOZA [Suspect]
     Dosage: 1.2 mg, qd
     Route: 058
     Dates: start: 201210, end: 201210

REACTIONS (2)
  - Pancreatitis [Unknown]
  - Sepsis [Unknown]
